FAERS Safety Report 21117268 (Version 1)
Quarter: 2022Q3

REPORT INFORMATION
  Report Type: Report from Study
  Country: BR (occurrence: BR)
  Receive Date: 20220722
  Receipt Date: 20220722
  Transmission Date: 20221026
  Serious: Yes (Other)
  Sender: FDA-Public Use
  Company Number: BR-ABBVIE-22K-020-4474913-00

PATIENT
  Sex: Female
  Weight: 107 kg

DRUGS (2)
  1. HUMIRA [Suspect]
     Active Substance: ADALIMUMAB
     Indication: Rheumatoid arthritis
     Route: 058
     Dates: end: 2015
  2. AZATHIOPRINE [Concomitant]
     Active Substance: AZATHIOPRINE
     Indication: Product used for unknown indication

REACTIONS (8)
  - Intestinal obstruction [Unknown]
  - Gastrointestinal stoma complication [Unknown]
  - Procedural site reaction [Unknown]
  - Hernia [Unknown]
  - Intestinal fistula [Unknown]
  - Impaired healing [Unknown]
  - Rheumatoid arthritis [Unknown]
  - Pain [Unknown]

NARRATIVE: CASE EVENT DATE: 20150101
